FAERS Safety Report 12376080 (Version 1)
Quarter: 2016Q2

REPORT INFORMATION
  Report Type: Spontaneous
  Country: US (occurrence: US)
  Receive Date: 20160517
  Receipt Date: 20160517
  Transmission Date: 20160815
  Serious: Yes (Death)
  Sender: FDA-Public Use
  Company Number: US-BEH-2016060907

PATIENT
  Age: 84 Year
  Sex: Male
  Weight: 60 kg

DRUGS (17)
  1. DIPHENHYDRAMINE. [Concomitant]
     Active Substance: DIPHENHYDRAMINE
  2. PRAMIPEXOLE. [Concomitant]
     Active Substance: PRAMIPEXOLE
  3. NYSTATIN. [Concomitant]
     Active Substance: NYSTATIN
  4. TERAZOSIN [Concomitant]
     Active Substance: TERAZOSIN\TERAZOSIN HYDROCHLORIDE
  5. LIDOCAINE/PRILOCAINE [Concomitant]
  6. ALLOPURINOL. [Concomitant]
     Active Substance: ALLOPURINOL
  7. ADULT ASPIRIN [Concomitant]
  8. ATENOLOL. [Concomitant]
     Active Substance: ATENOLOL
  9. KEFLEX [Concomitant]
     Active Substance: CEPHALEXIN
  10. ACETAMINOPHEN. [Concomitant]
     Active Substance: ACETAMINOPHEN
  11. CIPRO [Concomitant]
     Active Substance: CIPROFLOXACIN HYDROCHLORIDE
  12. FERROUS SULF [Concomitant]
  13. EPIPEN [Concomitant]
     Active Substance: EPINEPHRINE
  14. PANTOPRAZOLE [Concomitant]
     Active Substance: PANTOPRAZOLE SODIUM
  15. CALCIUM WITH D [Concomitant]
     Active Substance: CALCIUM\VITAMIN D
  16. HIZENTRA [Suspect]
     Active Substance: HUMAN IMMUNOGLOBULIN G
     Indication: IMMUNODEFICIENCY COMMON VARIABLE
     Route: 058
  17. ATORVASTATIN [Concomitant]
     Active Substance: ATORVASTATIN

REACTIONS (2)
  - Infusion site bruising [Unknown]
  - Death [Fatal]

NARRATIVE: CASE EVENT DATE: 201602
